FAERS Safety Report 6104986-9 (Version None)
Quarter: 2009Q1

REPORT INFORMATION
  Report Type: 
  Country: None (occurrence: None)
  Receive Date: 20090306
  Receipt Date: 20090227
  Transmission Date: 20090719
  Serious: Yes (Hospitalization)
  Sender: FDA-Public Use
  Company Number: BR-ASTRAZENECA-2009UW05607

PATIENT
  Age: 72 Year
  Sex: Female
  Weight: 85 kg

DRUGS (5)
  1. ATACAND HCT [Suspect]
     Indication: HYPERTENSION
     Dosage: ONE TABLET OF 16/12.5 MG
     Route: 048
     Dates: start: 20060101, end: 20090201
  2. ATACAND HCT [Suspect]
     Dosage: 2 TABLETS OF 16/12.5 MG
     Route: 048
     Dates: start: 20090201
  3. CRESTOR [Suspect]
     Indication: HYPERCHOLESTEROLAEMIA
     Route: 048
     Dates: start: 20060101, end: 20090201
  4. CRESTOR [Suspect]
     Route: 048
     Dates: start: 20090201
  5. ASPIRIN [Concomitant]
     Indication: ANTICOAGULANT THERAPY
     Route: 048
     Dates: start: 20060101

REACTIONS (1)
  - INFARCTION [None]
